FAERS Safety Report 5879542-8 (Version None)
Quarter: 2008Q3

REPORT INFORMATION
  Report Type: 
  Country: None (occurrence: None)
  Receive Date: 20080911
  Receipt Date: 20080911
  Transmission Date: 20090109
  Serious: Yes (Other)
  Sender: FDA-Public Use
  Company Number: None

PATIENT
  Sex: Male
  Weight: 82.5547 kg

DRUGS (1)
  1. ABILIFY [Suspect]
     Indication: PSYCHOTIC DISORDER
     Dosage: 5 UP TO 15 MG PER DAY PO
     Route: 048
     Dates: start: 20070917, end: 20080619

REACTIONS (6)
  - ABDOMINAL DISCOMFORT [None]
  - ANOREXIA [None]
  - EATING DISORDER [None]
  - PAIN [None]
  - UNDERWEIGHT [None]
  - VOMITING [None]
